FAERS Safety Report 26126100 (Version 2)
Quarter: 2025Q4

REPORT INFORMATION
  Report Type: Spontaneous
  Country: CN (occurrence: CN)
  Receive Date: 20251205
  Receipt Date: 20251209
  Transmission Date: 20260117
  Serious: Yes (Death, Life-Threatening, Hospitalization, Other)
  Sender: PFIZER
  Company Number: CN-PFIZER INC-PV202500140775

PATIENT
  Age: 82 Year
  Sex: Female
  Weight: 49 kg

DRUGS (12)
  1. LINEZOLID [Suspect]
     Active Substance: LINEZOLID
     Indication: Pneumonia acinetobacter
     Dosage: 600 MG, 2X/DAY
  2. LINEZOLID [Suspect]
     Active Substance: LINEZOLID
     Indication: Acinetobacter infection
  3. LINEZOLID [Suspect]
     Active Substance: LINEZOLID
     Indication: Pneumonia
  4. LINEZOLID [Suspect]
     Active Substance: LINEZOLID
     Indication: Corynebacterium infection
  5. CEFOPERAZONE SODIUM\SULBACTAM [Concomitant]
     Active Substance: CEFOPERAZONE SODIUM\SULBACTAM
     Indication: Pneumonia acinetobacter
     Dosage: UNK
  6. CEFOPERAZONE SODIUM\SULBACTAM [Concomitant]
     Active Substance: CEFOPERAZONE SODIUM\SULBACTAM
     Indication: Acinetobacter infection
  7. CEFOPERAZONE SODIUM\SULBACTAM [Concomitant]
     Active Substance: CEFOPERAZONE SODIUM\SULBACTAM
     Indication: Pneumonia
  8. CEFOPERAZONE SODIUM\SULBACTAM [Concomitant]
     Active Substance: CEFOPERAZONE SODIUM\SULBACTAM
     Indication: Corynebacterium infection
  9. TIGECYCLINE [Concomitant]
     Active Substance: TIGECYCLINE
     Indication: Pneumonia acinetobacter
     Dosage: UNK
  10. TIGECYCLINE [Concomitant]
     Active Substance: TIGECYCLINE
     Indication: Corynebacterium infection
  11. TIGECYCLINE [Concomitant]
     Active Substance: TIGECYCLINE
     Indication: Pneumonia
  12. TIGECYCLINE [Concomitant]
     Active Substance: TIGECYCLINE
     Indication: Acinetobacter infection

REACTIONS (3)
  - Hyperlactacidaemia [Fatal]
  - Mitochondrial toxicity [Fatal]
  - Off label use [Unknown]
